FAERS Safety Report 4640692-5 (Version None)
Quarter: 2005Q2

REPORT INFORMATION
  Report Type: 
  Country: None (occurrence: None)
  Receive Date: 20050321
  Receipt Date: 20040913
  Transmission Date: 20051028
  Serious: Yes (Life-Threatening)
  Sender: FDA-Public Use
  Company Number: NAPR0000091304

PATIENT
  Age: 37 Year
  Sex: Female
  Weight: 95 kg

DRUGS (5)
  1. NAPROXEN [Suspect]
     Dosage: 500 MG, Q12H, 047
  2. SUFENTANIL CITRATE [Suspect]
     Indication: GENERAL ANAESTHESIA
     Dosage: 35 MCG, 5MCG/HR, 054
  3. ROCURONIUM [Suspect]
     Indication: ANAESTHESIA
     Dosage: 50 MG/ONCE/064
  4. PROPOFOL [Suspect]
     Indication: SURGERY
     Dosage: 150 MG/ONCE/064
  5. DESFLURANE [Suspect]
     Indication: ANAESTHESIA
     Dosage: 5 MCG/HR/CONTINUOUS/054

REACTIONS (2)
  - BRADYCARDIA [None]
  - HYPERTENSION [None]
